FAERS Safety Report 8490179-7 (Version None)
Quarter: 2012Q3

REPORT INFORMATION
  Report Type: 
  Country: None (occurrence: None)
  Receive Date: 20120705
  Receipt Date: 20110613
  Transmission Date: 20120928
  Serious: No
  Sender: FDA-Public Use
  Company Number: US-BAUSCH-2011BL003878

PATIENT
  Age: 74 Year
  Sex: Female

DRUGS (1)
  1. OPCON-A [Suspect]
     Indication: MULTIPLE ALLERGIES
     Route: 047
     Dates: start: 20110612, end: 20110612

REACTIONS (2)
  - INSTILLATION SITE PAIN [None]
  - OCULAR HYPERAEMIA [None]
